FAERS Safety Report 5657007-6 (Version None)
Quarter: 2008Q1

REPORT INFORMATION
  Report Type: 
  Country: None (occurrence: None)
  Receive Date: 20080310
  Receipt Date: 20080225
  Transmission Date: 20080703
  Serious: Yes (Hospitalization, Disabling, Other)
  Sender: FDA-Public Use
  Company Number: US-ROCHE-512835

PATIENT
  Age: 19 Year
  Sex: Male
  Weight: 72.6 kg

DRUGS (4)
  1. ACCUTANE [Suspect]
     Indication: ACNE
     Route: 048
     Dates: start: 20030512, end: 20031101
  2. AMNESTEEM [Suspect]
     Indication: ACNE
     Route: 065
     Dates: start: 20030701, end: 20030801
  3. AMNESTEEM [Suspect]
     Route: 065
     Dates: start: 20041123, end: 20050101
  4. CLARAVIS [Suspect]
     Indication: ACNE
     Route: 065
     Dates: start: 20030801, end: 20030901

REACTIONS (18)
  - ABSCESS [None]
  - ANAEMIA [None]
  - ANXIETY [None]
  - BLOOD TRIGLYCERIDES INCREASED [None]
  - CARCINOID TUMOUR [None]
  - CARDIAC MURMUR [None]
  - CHAPPED LIPS [None]
  - CROHN'S DISEASE [None]
  - DEPRESSION [None]
  - GASTRIC ULCER [None]
  - GASTROENTERITIS [None]
  - GASTROOESOPHAGEAL REFLUX DISEASE [None]
  - ILEITIS [None]
  - INFLAMMATORY BOWEL DISEASE [None]
  - OSTEOPENIA [None]
  - PEPTIC ULCER [None]
  - PLATELET COUNT INCREASED [None]
  - PSEUDOPOLYP [None]
